FAERS Safety Report 14325820 (Version 4)
Quarter: 2018Q1

REPORT INFORMATION
  Report Type: Report from Study
  Country: IL (occurrence: IL)
  Receive Date: 20171226
  Receipt Date: 20180112
  Transmission Date: 20180509
  Serious: Yes (Hospitalization, Other)
  Sender: FDA-Public Use
  Company Number: IL-ACTELION-A-US2017-164783

PATIENT
  Sex: Male

DRUGS (3)
  1. VENTAVIS [Suspect]
     Active Substance: ILOPROST
     Dosage: UNK, 5X/DAY
     Route: 055
  2. VENTAVIS [Suspect]
     Active Substance: ILOPROST
     Indication: PULMONARY HYPERTENSION
     Dosage: UNK
     Route: 055
     Dates: start: 20170108
  3. REVATIO [Concomitant]
     Active Substance: SILDENAFIL CITRATE
     Dosage: UNK

REACTIONS (9)
  - Influenza [Unknown]
  - Pericardial effusion [Unknown]
  - Dyspnoea [Unknown]
  - Cardiac failure [Recovering/Resolving]
  - Asthenia [Unknown]
  - Product use issue [Unknown]
  - Heart rate irregular [Unknown]
  - Respiratory disorder [Recovering/Resolving]
  - Oedema peripheral [Unknown]

NARRATIVE: CASE EVENT DATE: 2017
